FAERS Safety Report 7647994-9 (Version None)
Quarter: 2011Q3

REPORT INFORMATION
  Report Type: 
  Country: None (occurrence: None)
  Receive Date: 20110801
  Receipt Date: 20110520
  Transmission Date: 20111222
  Serious: No
  Sender: FDA-Public Use
  Company Number: US-ABBOTT-11P-163-0804597-00

PATIENT

DRUGS (1)
  1. PANCREATIN TRIPLE STRENGTH CAP [Suspect]
     Indication: PRODUCT USED FOR UNKNOWN INDICATION
     Dosage: DAILY DOSE:  UNKNOWN
     Route: 065
     Dates: start: 20110101

REACTIONS (3)
  - FLATULENCE [None]
  - WEIGHT DECREASED [None]
  - FREQUENT BOWEL MOVEMENTS [None]
